FAERS Safety Report 10905708 (Version 1)
Quarter: 2015Q1

REPORT INFORMATION
  Report Type: Spontaneous
  Country: US (occurrence: None)
  Receive Date: 20150309
  Receipt Date: 20150309
  Transmission Date: 20150721
  Serious: Yes (Life-Threatening, Disabling)
  Sender: FDA-Public Use
  Company Number: None

PATIENT
  Age: 62 Year
  Sex: Female
  Weight: 56.7 kg

DRUGS (10)
  1. B VITS [Concomitant]
  2. MINERAL SUPPLEMENTS [Concomitant]
     Active Substance: UNSPECIFIED INGREDIENT
  3. 5HTP (SERATONIN) [Concomitant]
  4. VITAMIN D [Concomitant]
     Active Substance: CHOLECALCIFEROL
  5. MELLATONIN [Concomitant]
  6. COQ10 [Concomitant]
     Active Substance: UBIDECARENONE
  7. FISH OIL [Concomitant]
     Active Substance: FISH OIL
  8. VELVET BEAN [Concomitant]
  9. CYMBALTA [Suspect]
     Active Substance: DULOXETINE HYDROCHLORIDE
     Indication: PAIN
     Route: 048
  10. CYMBALTA [Suspect]
     Active Substance: DULOXETINE HYDROCHLORIDE
     Indication: DEPRESSION
     Route: 048

REACTIONS (16)
  - Musculoskeletal disorder [None]
  - Drug withdrawal syndrome [None]
  - Anger [None]
  - Insomnia [None]
  - Speech disorder [None]
  - Depression [None]
  - Gait disturbance [None]
  - Influenza like illness [None]
  - Fatigue [None]
  - Crying [None]
  - Aphasia [None]
  - Choking [None]
  - Malaise [None]
  - Blood pressure increased [None]
  - Dysphagia [None]
  - Quality of life decreased [None]

NARRATIVE: CASE EVENT DATE: 20140414
